FAERS Safety Report 8360379-5 (Version None)
Quarter: 2012Q1

REPORT INFORMATION
  Report Type: 
  Country: None (occurrence: None)
  Receive Date: 20120323
  Receipt Date: 20110523
  Transmission Date: 20120608
  Serious: Yes (Death, Hospitalization)
  Sender: FDA-Public Use
  Company Number: 163-21880-11043078

PATIENT
  Age: 80 Year
  Sex: Female

DRUGS (1)
  1. REVLIMID [Suspect]
     Indication: MYELODYSPLASTIC SYNDROME
     Dosage: 10 MG, DAILY 21 DAYS  ON, 7 DAYS OFF, PO
     Route: 048
     Dates: start: 20110301, end: 20110101

REACTIONS (4)
  - PNEUMONIA [None]
  - DISEASE PROGRESSION [None]
  - LABORATORY TEST ABNORMAL [None]
  - MYELODYSPLASTIC SYNDROME [None]
